FAERS Safety Report 9800995 (Version 6)
Quarter: 2015Q2

REPORT INFORMATION
  Report Type: Report from Study
  Country: UA (occurrence: UA)
  Receive Date: 20140107
  Receipt Date: 20150623
  Transmission Date: 20150821
  Serious: Yes (Death, Life-Threatening, Hospitalization)
  Sender: FDA-Public Use
  Company Number: UA-TEVA-432512USA

PATIENT
  Age: 61 Year
  Sex: Female
  Weight: 82 kg

DRUGS (25)
  1. PLACEBO [Suspect]
     Active Substance: UNSPECIFIED INGREDIENT
     Indication: CHRONIC LYMPHOCYTIC LEUKAEMIA
     Dosage: 420 MILLIGRAM DAILY;
     Route: 048
     Dates: start: 20130612
  2. DIPHENHYDRAMINE [Concomitant]
     Active Substance: DIPHENHYDRAMINE
     Indication: PREMEDICATION
     Dosage: 50 MILLIGRAM DAILY;
     Route: 042
     Dates: start: 20130710
  3. PARACETAMOL [Concomitant]
     Active Substance: ACETAMINOPHEN
     Dates: start: 20130901
  4. PREDNISOLONE. [Concomitant]
     Active Substance: PREDNISOLONE
     Indication: RESPIRATORY TRACT OEDEMA
     Dates: start: 20130611
  5. ESSENTIALE 303 [Concomitant]
     Indication: ANTIVIRAL PROPHYLAXIS
     Dosage: THRICE DAILY
     Dates: start: 20130904
  6. BENDAMUSTINE [Suspect]
     Active Substance: BENDAMUSTINE
     Indication: CHRONIC LYMPHOCYTIC LEUKAEMIA
     Dosage: ONCE EVERY FOUR WEEKS
     Route: 042
     Dates: start: 20130612
  7. PLACEBO [Suspect]
     Active Substance: UNSPECIFIED INGREDIENT
     Dosage: 420 MILLIGRAM DAILY;
     Route: 048
     Dates: start: 20130904
  8. FLUCONAZOLE. [Concomitant]
     Active Substance: FLUCONAZOLE
     Indication: PROPHYLAXIS
     Dosage: 50 MILLIGRAM DAILY;
     Dates: start: 20130904
  9. PARACETAMOL [Concomitant]
     Active Substance: ACETAMINOPHEN
     Dates: start: 20130821
  10. OMEZ [Concomitant]
     Active Substance: OMEPRAZOLE
     Indication: PROPHYLAXIS AGAINST GASTROINTESTINAL ULCER
     Dosage: 60 MILLIGRAM DAILY;
     Route: 048
     Dates: start: 20130805
  11. BENDAMUSTINE [Suspect]
     Active Substance: BENDAMUSTINE
     Dosage: ONCE EVERY FOUR WEEKS
     Route: 042
     Dates: start: 20130822
  12. RITUXIMAB [Suspect]
     Active Substance: RITUXIMAB
     Dosage: ONCE EVERY FOUR WEEKS
     Route: 042
     Dates: start: 20130821
  13. PREDNISOLONE. [Concomitant]
     Active Substance: PREDNISOLONE
     Dates: start: 20130712
  14. DIPHENHYDRAMINE [Concomitant]
     Active Substance: DIPHENHYDRAMINE
     Indication: PYREXIA
     Dosage: 20 MILLIGRAM DAILY;
     Route: 042
     Dates: start: 20130611
  15. PREDNISOLONE. [Concomitant]
     Active Substance: PREDNISOLONE
     Dates: start: 20130821
  16. RITUXIMAB [Suspect]
     Active Substance: RITUXIMAB
     Indication: CHRONIC LYMPHOCYTIC LEUKAEMIA
     Dosage: ONCE EVERY FOUR WEEKS
     Route: 042
     Dates: start: 20130611
  17. FLUCONAZOLE. [Concomitant]
     Active Substance: FLUCONAZOLE
     Indication: ORAL CANDIDIASIS
     Dosage: 50 MILLIGRAM DAILY;
     Dates: start: 20130805
  18. PARACETAMOL [Concomitant]
     Active Substance: ACETAMINOPHEN
     Indication: PREMEDICATION
     Dates: start: 20130711
  19. PREDNISOLONE. [Concomitant]
     Active Substance: PREDNISOLONE
     Indication: PREMEDICATION
     Dates: start: 20130710
  20. NEUROBION [Concomitant]
     Active Substance: CYANOCOBALAMIN\PYRIDOXINE\THIAMINE
     Indication: VASCULITIS
     Route: 048
     Dates: start: 20130716
  21. SIOFOR [Concomitant]
     Active Substance: METFORMIN HYDROCHLORIDE
     Dates: start: 20130318
  22. HEPTRAL [Concomitant]
     Active Substance: ADEMETIONINE
     Indication: ANTIVIRAL PROPHYLAXIS
     Dosage: 400 MILLIGRAM DAILY;
     Route: 048
     Dates: start: 20130805
  23. QUINAX [Concomitant]
     Indication: VITREOUS OPACITIES
     Dosage: 12 GTT DAILY;
     Dates: start: 20130719
  24. METFORMIN HYDROCHLORIDE. [Concomitant]
     Active Substance: METFORMIN HYDROCHLORIDE
     Indication: DIABETES MELLITUS
     Dosage: 2000 MILLIGRAM DAILY;
     Route: 048
     Dates: start: 20130318
  25. CEFODOX [Concomitant]
     Active Substance: CEFPODOXIME PROXETIL
     Indication: INFECTION PROPHYLAXIS
     Dosage: 400 MILLIGRAM DAILY;
     Route: 048
     Dates: start: 20130904

REACTIONS (6)
  - Hyperuricaemia [Recovered/Resolved]
  - Hepatitis toxic [Not Recovered/Not Resolved]
  - Oral candidiasis [Not Recovered/Not Resolved]
  - Hypersensitivity vasculitis [Not Recovered/Not Resolved]
  - Multi-organ failure [Fatal]
  - Pneumonia [Not Recovered/Not Resolved]

NARRATIVE: CASE EVENT DATE: 20130904
